FAERS Safety Report 19647534 (Version 1)
Quarter: 2021Q3

REPORT INFORMATION
  Report Type: Spontaneous
  Country: US (occurrence: US)
  Receive Date: 20210802
  Receipt Date: 20210802
  Transmission Date: 20211014
  Serious: Yes (Other)
  Sender: FDA-Public Use
  Company Number: US-PURDUE-USA-2020-0276509

PATIENT
  Sex: Male

DRUGS (1)
  1. OXYCONTIN [Suspect]
     Active Substance: OXYCODONE HYDROCHLORIDE
     Indication: PAIN
     Dosage: UNKNOWN
     Route: 048

REACTIONS (9)
  - Back pain [Unknown]
  - Blood testosterone decreased [Unknown]
  - Drug dependence [Unknown]
  - Myoclonus [Unknown]
  - Cardiac disorder [Unknown]
  - Hormone level abnormal [Unknown]
  - Renal disorder [Unknown]
  - Muscle rigidity [Unknown]
  - Asthenia [Unknown]
